FAERS Safety Report 12549732 (Version 2)
Quarter: 2016Q3

REPORT INFORMATION
  Report Type: Spontaneous
  Country: US (occurrence: US)
  Receive Date: 20160712
  Receipt Date: 20160721
  Transmission Date: 20161109
  Serious: Yes (Other)
  Sender: FDA-Public Use
  Company Number: US-BAYER-2016-131445

PATIENT
  Age: 65 Year
  Sex: Male

DRUGS (1)
  1. BETASERON [Suspect]
     Active Substance: INTERFERON BETA-1B
     Indication: MULTIPLE SCLEROSIS
     Dosage: 0.3 MG, QOD
     Dates: start: 20160229, end: 201605

REACTIONS (3)
  - Intentional product misuse [None]
  - Multiple sclerosis relapse [None]
  - Drug dose omission [None]

NARRATIVE: CASE EVENT DATE: 201605
